FAERS Safety Report 25581952 (Version 2)
Quarter: 2025Q3

REPORT INFORMATION
  Report Type: Spontaneous
  Country: CN (occurrence: CN)
  Receive Date: 20250719
  Receipt Date: 20250731
  Transmission Date: 20251020
  Serious: Yes (Life-Threatening, Hospitalization, Other)
  Sender: MACLEODS
  Company Number: CN-MACLEODS PHARMA-MAC2025054114

PATIENT

DRUGS (4)
  1. LIDOCAINE [Suspect]
     Active Substance: LIDOCAINE
     Indication: Peripheral nerve operation
     Route: 053
  2. ROPIVACAINE [Suspect]
     Active Substance: ROPIVACAINE
     Indication: Peripheral nerve operation
     Route: 053
  3. SALINE [Concomitant]
     Active Substance: SODIUM CHLORIDE
     Indication: Product used for unknown indication
     Route: 042
  4. OXYGEN [Concomitant]
     Active Substance: OXYGEN
     Indication: Product used for unknown indication
     Dosage: 3 L/MIN VIA NASAL CANNULA
     Route: 045

REACTIONS (4)
  - Local anaesthetic systemic toxicity [Recovered/Resolved]
  - Neurotoxicity [Unknown]
  - Unresponsive to stimuli [Unknown]
  - Loss of consciousness [Unknown]
